FAERS Safety Report 21558517 (Version 1)
Quarter: 2022Q4

REPORT INFORMATION
  Report Type: Spontaneous
  Country: None (occurrence: CN)
  Receive Date: 20221107
  Receipt Date: 20221107
  Transmission Date: 20230112
  Serious: Yes (Other)
  Sender: FDA-Public Use
  Company Number: CN-Jiangsu Hengrui Medicine Co., Ltd.-2134569

PATIENT
  Sex: Female

DRUGS (6)
  1. CISATRACURIUM BESYLATE [Suspect]
     Active Substance: CISATRACURIUM BESYLATE
     Indication: Muscle relaxant therapy
     Route: 041
  2. ESKETAMINE HYDROCHLORIDE [Suspect]
     Active Substance: ESKETAMINE HYDROCHLORIDE
  3. SEVOFLURANE [Suspect]
     Active Substance: SEVOFLURANE
  4. SUFENTANIL [Suspect]
     Active Substance: SUFENTANIL
  5. PROPOFOL [Suspect]
     Active Substance: PROPOFOL
  6. ROCURONIUM BROMIDE [Suspect]
     Active Substance: ROCURONIUM BROMIDE

REACTIONS (1)
  - Respiratory depression [Unknown]
